FAERS Safety Report 9247892 (Version 1)
Quarter: 2013Q1

REPORT INFORMATION
  Report Type: Spontaneous
  Country: US (occurrence: None)
  Receive Date: 20121130
  Receipt Date: 20121130
  Transmission Date: 20140127
  Serious: Yes (Hospitalization)
  Sender: FDA-Public Use
  Company Number: 341957

PATIENT
  Age: 68 Year
  Sex: Female
  Weight: 73.5 kg

DRUGS (5)
  1. LEVEMIR [Suspect]
     Indication: TYPE 1 DIABETES MELLITUS
     Dosage: 25 U
     Route: 058
  2. NOVOLOG [Suspect]
     Indication: TYPE 1 DIABETES MELLITUS
     Dosage: 8 U
     Route: 058
  3. LEVOTHYROXINE (LEVOTHYROXINE) [Concomitant]
  4. LOSARTAN (LOSARTAN) [Concomitant]
  5. PROTONIX (PANTOPRAZOLE SODIUM SESQUIHYDRATE) [Concomitant]

REACTIONS (2)
  - Incorrect dose administered [None]
  - Blood glucose increased [None]
